FAERS Safety Report 7486542-3 (Version None)
Quarter: 2011Q2

REPORT INFORMATION
  Report Type: 
  Country: None (occurrence: None)
  Receive Date: 20110517
  Receipt Date: 20110308
  Transmission Date: 20111010
  Serious: Yes (Other)
  Sender: FDA-Public Use
  Company Number: US-AMGEN-USASP2011013080

PATIENT
  Age: 36 Year
  Sex: Female

DRUGS (1)
  1. ENBREL [Suspect]
     Indication: RHEUMATOID ARTHRITIS
     Dosage: UNK
     Dates: start: 20091215, end: 20110227

REACTIONS (10)
  - HERPES ZOSTER [None]
  - DYSPNOEA [None]
  - ARTHRALGIA [None]
  - NECK PAIN [None]
  - OEDEMA PERIPHERAL [None]
  - HYPOAESTHESIA FACIAL [None]
  - COSTOCHONDRITIS [None]
  - HYPERHIDROSIS [None]
  - ANAEMIA [None]
  - PYREXIA [None]
